FAERS Safety Report 5413854-7 (Version None)
Quarter: 2007Q3

REPORT INFORMATION
  Report Type: 
  Country: None (occurrence: None)
  Receive Date: 20070814
  Receipt Date: 20070509
  Transmission Date: 20080115
  Serious: No
  Sender: FDA-Public Use
  Company Number: US-BRISTOL-MYERS SQUIBB COMPANY-13774336

PATIENT
  Age: 46 Year
  Sex: Male

DRUGS (7)
  1. REYATAZ [Suspect]
     Indication: HIV INFECTION
     Route: 048
  2. FUZEON [Concomitant]
  3. RITONAVIR [Concomitant]
  4. BACTRIM DS [Concomitant]
  5. FLUCONAZOLE [Concomitant]
  6. ERYTHROMYCIN [Concomitant]
  7. ACYCLOVIR [Concomitant]

REACTIONS (2)
  - BLOOD CREATINE PHOSPHOKINASE INCREASED [None]
  - MYALGIA [None]
